FAERS Safety Report 24268461 (Version 1)
Quarter: 2024Q3

REPORT INFORMATION
  Report Type: Spontaneous
  Country: US (occurrence: None)
  Receive Date: 20240829
  Receipt Date: 20240829
  Transmission Date: 20241016
  Serious: No
  Sender: Public
  Company Number: None

PATIENT
  Age: 66 Year
  Sex: Female

DRUGS (1)
  1. RINVOQ [Suspect]
     Active Substance: UPADACITINIB
     Indication: Dermatitis atopic
     Dosage: FREQUENCY : DAILY;?
     Route: 048
     Dates: start: 202406, end: 202407

REACTIONS (5)
  - Platelet count decreased [None]
  - White blood cell count increased [None]
  - Fatigue [None]
  - Therapy cessation [None]
  - Urticaria [None]

NARRATIVE: CASE EVENT DATE: 20240601
